FAERS Safety Report 24350120 (Version 2)
Quarter: 2025Q1

REPORT INFORMATION
  Report Type: Spontaneous
  Country: US (occurrence: US)
  Receive Date: 20240923
  Receipt Date: 20250103
  Transmission Date: 20250408
  Serious: No
  Sender: ITALFARMACO SPA
  Company Number: US-ITALFARMACO SPA-2161917

PATIENT
  Age: 13 Year
  Sex: Male
  Weight: 35.5 kg

DRUGS (1)
  1. DUVYZAT [Suspect]
     Active Substance: GIVINOSTAT
     Indication: Muscular dystrophy
     Dates: start: 20240812

REACTIONS (3)
  - Urinary incontinence [Not Recovered/Not Resolved]
  - Viral infection [Recovered/Resolved]
  - Motion sickness [Unknown]
